FAERS Safety Report 7764668-4 (Version None)
Quarter: 2011Q3

REPORT INFORMATION
  Report Type: 
  Country: None (occurrence: None)
  Receive Date: 20110919
  Receipt Date: 20110907
  Transmission Date: 20111222
  Serious: Yes (Other)
  Sender: FDA-Public Use
  Company Number: 2011090062

PATIENT
  Age: 62 Year
  Sex: Female

DRUGS (1)
  1. AZELASTINE HYDROCHLORIDE [Suspect]
     Indication: EYE PRURITUS
     Dosage: 1 GTT, ONE DROP INTO EACH EYE (2 GTT),OPHTHALMIC
     Route: 047
     Dates: start: 20110822, end: 20110822

REACTIONS (3)
  - DRUG HYPERSENSITIVITY [None]
  - SWOLLEN TONGUE [None]
  - RASH [None]
